FAERS Safety Report 10146736 (Version 1)
Quarter: 2014Q2

REPORT INFORMATION
  Report Type: Spontaneous
  Country: US (occurrence: None)
  Receive Date: 20140430
  Receipt Date: 20140430
  Transmission Date: 20141212
  Serious: Yes (Hospitalization)
  Sender: FDA-Public Use
  Company Number: None

PATIENT
  Age: 35 Year
  Sex: Female

DRUGS (12)
  1. OXYCODONE [Suspect]
     Indication: PAIN
     Dosage: EVERY 6 HOURS
     Route: 048
     Dates: start: 20130805, end: 20130805
  2. ACETAMINOPHEN [Concomitant]
  3. CLONAZEPAM [Concomitant]
  4. CYANOCOBALAMIN [Concomitant]
  5. CYCLOBENZAPRINE [Concomitant]
  6. DIBUCAINE TOPICAL [Concomitant]
  7. FERROUS SULFATE [Concomitant]
  8. METOCLOPRAMIDE [Concomitant]
  9. PROCHLORPERZINE [Concomitant]
  10. SERTRALINE [Concomitant]
  11. ORTHO TRI-CYCLEN [Concomitant]
  12. OMEPRAZOLE [Concomitant]

REACTIONS (5)
  - Dysarthria [None]
  - Mental status changes [None]
  - Alcohol use [None]
  - Incorrect dose administered [None]
  - Tearfulness [None]
